FAERS Safety Report 20090941 (Version 1)
Quarter: 2021Q4

REPORT INFORMATION
  Report Type: Spontaneous
  Country: BR (occurrence: BR)
  Receive Date: 20211119
  Receipt Date: 20211119
  Transmission Date: 20220303
  Serious: Yes (Other)
  Sender: FDA-Public Use
  Company Number: BR-PFIZER INC-202101571217

PATIENT
  Age: 71 Year
  Sex: Female

DRUGS (3)
  1. XALATAN [Suspect]
     Active Substance: LATANOPROST
     Indication: Glaucoma
     Dosage: UNK, 1X/DAY
     Route: 047
  2. XALATAN [Suspect]
     Active Substance: LATANOPROST
     Dosage: UNK, 1X/DAY
     Route: 047
  3. AZOPT [Concomitant]
     Active Substance: BRINZOLAMIDE
     Dosage: UNK, 2X/DAY
     Route: 047

REACTIONS (2)
  - Deafness [Unknown]
  - Cataract [Unknown]

NARRATIVE: CASE EVENT DATE: 20170101
